FAERS Safety Report 4442244-9 (Version None)
Quarter: 2004Q3

REPORT INFORMATION
  Report Type: 
  Country: None (occurrence: None)
  Receive Date: 20040903
  Receipt Date: 20040722
  Transmission Date: 20050211
  Serious: Yes (Other)
  Sender: FDA-Public Use
  Company Number: 2004UW08492

PATIENT
  Age: 57 Year
  Sex: Male
  Weight: 79.3795 kg

DRUGS (5)
  1. CRESTOR [Suspect]
     Indication: HYPERLIPIDAEMIA
     Dosage: 10 MG QD PO
     Route: 048
     Dates: start: 20040105, end: 20040423
  2. COZAAR [Concomitant]
  3. COREG [Concomitant]
  4. ACETYLSALICYLIC ACID [Concomitant]
  5. NIACIN [Concomitant]

REACTIONS (3)
  - MIGRAINE [None]
  - MYALGIA [None]
  - VISUAL DISTURBANCE [None]
